FAERS Safety Report 14024342 (Version 1)
Quarter: 2017Q3

REPORT INFORMATION
  Report Type: Spontaneous
  Country: US (occurrence: US)
  Receive Date: 20170928
  Receipt Date: 20170928
  Transmission Date: 20171128
  Serious: No
  Sender: FDA-Public Use
  Company Number: US-SA-2017SA002616

PATIENT
  Sex: Female

DRUGS (9)
  1. ZETIA [Concomitant]
     Active Substance: EZETIMIBE
  2. NITROFURANTOIN. [Concomitant]
     Active Substance: NITROFURANTOIN
  3. VITAMIN E [Concomitant]
     Active Substance: .ALPHA.-TOCOPHEROL
  4. BACLOFEN. [Concomitant]
     Active Substance: BACLOFEN
  5. DESMOPRESSIN [Concomitant]
     Active Substance: DESMOPRESSIN
  6. OXYBUTYNIN [Concomitant]
     Active Substance: OXYBUTYNIN
  7. VITAMIN D [Concomitant]
     Active Substance: CHOLECALCIFEROL
  8. AMPYRA [Concomitant]
     Active Substance: DALFAMPRIDINE
  9. AUBAGIO [Suspect]
     Active Substance: TERIFLUNOMIDE
     Indication: MULTIPLE SCLEROSIS
     Route: 048
     Dates: start: 20161002

REACTIONS (1)
  - Hepatic enzyme increased [Unknown]
